FAERS Safety Report 12718186 (Version 1)
Quarter: 2016Q3

REPORT INFORMATION
  Report Type: Spontaneous
  Country: RS (occurrence: RS)
  Receive Date: 20160906
  Receipt Date: 20160906
  Transmission Date: 20161109
  Serious: Yes (Other)
  Sender: FDA-Public Use
  Company Number: RS-ELI_LILLY_AND_COMPANY-RS201607013465

PATIENT
  Age: 77 Year
  Sex: Male

DRUGS (1)
  1. ERBITUX [Suspect]
     Active Substance: CETUXIMAB
     Indication: COLORECTAL CANCER METASTATIC
     Dosage: UNK UNK, UNKNOWN
     Route: 065

REACTIONS (2)
  - Pancytopenia [Recovered/Resolved]
  - Rash maculo-papular [Recovered/Resolved]

NARRATIVE: CASE EVENT DATE: 201602
